FAERS Safety Report 12109625 (Version 1)
Quarter: 2016Q1

REPORT INFORMATION
  Report Type: Spontaneous
  Country: FI (occurrence: FI)
  Receive Date: 20160224
  Receipt Date: 20160224
  Transmission Date: 20160526
  Serious: Yes (Hospitalization, Other)
  Sender: FDA-Public Use
  Company Number: FI-GLAXOSMITHKLINE-FI2016GSK024269

PATIENT
  Age: 92 Year
  Sex: Female

DRUGS (3)
  1. ZINACEF [Suspect]
     Active Substance: CEFUROXIME SODIUM
     Indication: PRODUCT USED FOR UNKNOWN INDICATION
     Dosage: UNK
     Dates: start: 201311
  2. TARGINIQ ER [Suspect]
     Active Substance: NALOXONE HYDROCHLORIDE\OXYCODONE HYDROCHLORIDE
     Indication: PRODUCT USED FOR UNKNOWN INDICATION
     Route: 048
  3. KEFEXIN [Suspect]
     Active Substance: CEPHALEXIN
     Indication: COUGH
     Dosage: UNK
     Route: 048
     Dates: start: 2013, end: 201311

REACTIONS (9)
  - Clostridium difficile colitis [Recovered/Resolved]
  - Fall [Recovered/Resolved]
  - Femur fracture [Recovered/Resolved]
  - Hip fracture [Recovered/Resolved]
  - Confusional state [Recovered/Resolved]
  - General physical health deterioration [Recovered/Resolved]
  - C-reactive protein increased [Recovered/Resolved]
  - Diarrhoea [Recovered/Resolved]
  - Hallucination [Recovered/Resolved]

NARRATIVE: CASE EVENT DATE: 2013
